FAERS Safety Report 13209820 (Version 1)
Quarter: 2017Q1

REPORT INFORMATION
  Report Type: Spontaneous
  Country: US (occurrence: US)
  Receive Date: 20170209
  Receipt Date: 20170209
  Transmission Date: 20170428
  Serious: Yes (Hospitalization)
  Sender: FDA-Public Use
  Company Number: None

PATIENT
  Age: 60 Year
  Sex: Male

DRUGS (5)
  1. GLUCOSAMINE [Concomitant]
     Active Substance: GLUCOSAMINE
  2. MENS 50 [Concomitant]
  3. METOPROLOL. [Concomitant]
     Active Substance: METOPROLOL
  4. ERIVEDGE [Suspect]
     Active Substance: VISMODEGIB
     Indication: BASAL CELL CARCINOMA
     Route: 048
     Dates: start: 20161015
  5. LOSARTAN. [Concomitant]
     Active Substance: LOSARTAN

REACTIONS (1)
  - Ulcer haemorrhage [None]

NARRATIVE: CASE EVENT DATE: 20170201
